FAERS Safety Report 20447528 (Version 1)
Quarter: 2022Q1

REPORT INFORMATION
  Report Type: Report from Study
  Country: US (occurrence: US)
  Receive Date: 20220209
  Receipt Date: 20220209
  Transmission Date: 20220423
  Serious: No
  Sender: FDA-Public Use
  Company Number: US-HRARD-2021000353

PATIENT
  Sex: Female

DRUGS (3)
  1. LYSODREN [Suspect]
     Active Substance: MITOTANE
     Dosage: 500 MG 4 TIMES DAILY.
     Route: 048
     Dates: start: 20210419, end: 20210507
  2. LYSODREN [Suspect]
     Active Substance: MITOTANE
     Dosage: TITRATING DOSE (DOSE NOT PROVIDED).
     Route: 048
     Dates: start: 20210610, end: 20210612
  3. LYSODREN [Suspect]
     Active Substance: MITOTANE
     Dosage: 1500 MG BID
     Route: 048

REACTIONS (7)
  - Pruritus [Unknown]
  - Urticaria [Unknown]
  - Nausea [Not Recovered/Not Resolved]
  - Fatigue [Unknown]
  - Headache [Unknown]
  - Vomiting [Not Recovered/Not Resolved]
  - Diarrhoea [Unknown]

NARRATIVE: CASE EVENT DATE: 20210101
